FAERS Safety Report 8366786-9 (Version None)
Quarter: 2012Q2

REPORT INFORMATION
  Report Type: 
  Country: None (occurrence: None)
  Receive Date: 20120517
  Receipt Date: 20120509
  Transmission Date: 20120825
  Serious: Yes (Hospitalization)
  Sender: FDA-Public Use
  Company Number: US-UCBSA-057217

PATIENT
  Age: 21 Year
  Sex: Female
  Weight: 51.5 kg

DRUGS (5)
  1. ADALIMUMAB [Concomitant]
     Indication: CROHN'S DISEASE
     Dates: start: 20070125
  2. BUDESONIDE [Concomitant]
     Indication: CROHN'S DISEASE
     Dates: start: 20070226
  3. FLAGYL [Concomitant]
     Indication: CROHN'S DISEASE
     Dates: start: 20100721
  4. CIMZIA [Suspect]
     Indication: CROHN'S DISEASE
     Dates: start: 20110719, end: 20120101
  5. AZATHIOPRINE [Concomitant]
     Indication: CROHN'S DISEASE

REACTIONS (1)
  - PERIRECTAL ABSCESS [None]
